FAERS Safety Report 5876868-9 (Version None)
Quarter: 2008Q3

REPORT INFORMATION
  Report Type: 
  Country: None (occurrence: None)
  Receive Date: 20080908
  Receipt Date: 20080825
  Transmission Date: 20090109
  Serious: Yes (Other)
  Sender: FDA-Public Use
  Company Number: 238074J08USA

PATIENT
  Age: 63 Year
  Sex: Female

DRUGS (4)
  1. REBIF [Suspect]
     Indication: MULTIPLE SCLEROSIS
     Dosage: 44 MCG, 3 IN 1 WEEKS, SUBCUTANEOUS
     Route: 058
     Dates: start: 20030604
  2. LISINOPRIL [Concomitant]
  3. UNSPECIFIED ANTIDIABETIC PILL (ANTI0DUABETICS) [Concomitant]
  4. MULTIPLE UNSPECIFIED MEDICATIONS (ALL OTHER  THERAPEUTIC PRODUCTS) [Concomitant]

REACTIONS (2)
  - CYSTITIS [None]
  - RENAL IMPAIRMENT [None]
